FAERS Safety Report 7485773-6 (Version None)
Quarter: 2011Q2

REPORT INFORMATION
  Report Type: 
  Country: None (occurrence: None)
  Receive Date: 20110516
  Receipt Date: 20110516
  Transmission Date: 20111010
  Serious: Yes (Other)
  Sender: FDA-Public Use
  Company Number: None

PATIENT
  Age: 63 Year
  Sex: Female
  Weight: 74.8435 kg

DRUGS (1)
  1. ALENDRONATE SODIUM [Suspect]
     Indication: BONE LOSS
     Dosage: 70MG ONCE A WEEK (SUNDAY)
     Dates: start: 20060507, end: 20110501

REACTIONS (15)
  - INFLUENZA LIKE ILLNESS [None]
  - DIZZINESS [None]
  - ABDOMINAL PAIN UPPER [None]
  - HEADACHE [None]
  - URTICARIA [None]
  - BONE PAIN [None]
  - JOINT SWELLING [None]
  - OROPHARYNGEAL PAIN [None]
  - ASTHENIA [None]
  - COUGH [None]
  - NAUSEA [None]
  - CHEST PAIN [None]
  - MUSCLE SPASMS [None]
  - PAIN IN EXTREMITY [None]
  - ARTHRALGIA [None]
